FAERS Safety Report 5318057-2 (Version None)
Quarter: 2007Q2

REPORT INFORMATION
  Report Type: 
  Country: None (occurrence: None)
  Receive Date: 20070507
  Receipt Date: 20070426
  Transmission Date: 20071010
  Serious: Yes (Hospitalization)
  Sender: FDA-Public Use
  Company Number: US-ROCHE-494889

PATIENT
  Age: 15 Year
  Sex: Female
  Weight: 61.1 kg

DRUGS (5)
  1. PEGASYS [Suspect]
     Route: 065
     Dates: start: 20060908, end: 20061218
  2. PEGASYS [Suspect]
     Route: 065
     Dates: start: 20061218, end: 20070313
  3. PEGASYS [Suspect]
     Route: 065
     Dates: start: 20070313, end: 20070417
  4. PEGASYS [Suspect]
     Route: 065
     Dates: start: 20070417
  5. FERROUS GLUCONATE [Concomitant]

REACTIONS (9)
  - CEREBROVASCULAR ACCIDENT [None]
  - DYSPHAGIA [None]
  - HEADACHE [None]
  - HYPOAESTHESIA [None]
  - HYPOAESTHESIA ORAL [None]
  - MUSCULAR WEAKNESS [None]
  - NEUTROPHIL COUNT DECREASED [None]
  - VISION BLURRED [None]
  - WHITE BLOOD CELL COUNT DECREASED [None]
